FAERS Safety Report 25368748 (Version 1)
Quarter: 2025Q2

REPORT INFORMATION
  Report Type: Spontaneous
  Country: US (occurrence: US)
  Receive Date: 20250528
  Receipt Date: 20250528
  Transmission Date: 20250716
  Serious: No
  Sender: PFIZER
  Company Number: US-PFIZER INC-202500107472

PATIENT
  Age: 50 Year
  Sex: Female

DRUGS (1)
  1. PANTOPRAZOLE [Suspect]
     Active Substance: PANTOPRAZOLE
     Dosage: 40 MG, 1X/DAY
     Dates: start: 20180101, end: 20250509

REACTIONS (3)
  - Panic attack [Recovered/Resolved]
  - Menopause [Recovered/Resolved]
  - Mental disorder [Recovered/Resolved]
